FAERS Safety Report 14507584 (Version 7)
Quarter: 2019Q1

REPORT INFORMATION
  Report Type: Report from Study
  Country: US (occurrence: US)
  Receive Date: 20180208
  Receipt Date: 20190213
  Transmission Date: 20190417
  Serious: Yes (Hospitalization)
  Sender: FDA-Public Use
  Company Number: US-ACTELION-A-US2018-167301

PATIENT
  Age: 60 Year
  Sex: Female
  Weight: 104.76 kg

DRUGS (3)
  1. TRACLEER [Suspect]
     Active Substance: BOSENTAN
     Indication: PULMONARY HYPERTENSION
     Dosage: 125 MG, BID
     Route: 048
  2. ADCIRCA [Concomitant]
     Active Substance: TADALAFIL
  3. TYVASO [Concomitant]
     Active Substance: TREPROSTINIL

REACTIONS (7)
  - Haemoglobin decreased [Unknown]
  - Transfusion [Unknown]
  - Internal haemorrhage [Unknown]
  - Arthralgia [Unknown]
  - Hereditary haemorrhagic telangiectasia [Unknown]
  - Melaena [Unknown]
  - Intestinal haemorrhage [Unknown]
